FAERS Safety Report 21795733 (Version 2)
Quarter: 2022Q4

REPORT INFORMATION
  Report Type: Report from Study
  Country: US (occurrence: US)
  Receive Date: 20221229
  Receipt Date: 20221230
  Transmission Date: 20230113
  Serious: No
  Sender: FDA-Public Use
  Company Number: US-ABBVIE-4239739

PATIENT
  Sex: Female

DRUGS (1)
  1. HUMIRA [Suspect]
     Active Substance: ADALIMUMAB
     Indication: Colitis ulcerative
     Dosage: STRENGTH-40 MG
     Route: 058
     Dates: start: 20221019

REACTIONS (1)
  - Dry mouth [Recovering/Resolving]

NARRATIVE: CASE EVENT DATE: 20220101
